FAERS Safety Report 16776968 (Version 3)
Quarter: 2019Q3

REPORT INFORMATION
  Report Type: Spontaneous
  Country: RU (occurrence: RU)
  Receive Date: 20190905
  Receipt Date: 20190916
  Transmission Date: 20191005
  Serious: Yes (Death, Other)
  Sender: FDA-Public Use
  Company Number: RU-BAYER-2019-161782

PATIENT
  Sex: Male

DRUGS (3)
  1. ULTRAVIST [Suspect]
     Active Substance: IOPROMIDE
     Indication: COMPUTERISED TOMOGRAM
     Dosage: 5 ML, ONCE
     Dates: start: 20190828
  2. ULTRAVIST [Suspect]
     Active Substance: IOPROMIDE
     Indication: ANGIOGRAM
     Dosage: 4.0 ML (4.0 ML / SEC 30ML)
  3. PHYSIOLOGICAL SALINE SOLUTION [Concomitant]
     Active Substance: SODIUM CHLORIDE
     Dosage: 30 ML, UNK

REACTIONS (12)
  - Respiratory rate decreased [Recovered/Resolved]
  - Myocardial infarction [Fatal]
  - Death [Fatal]
  - Loss of consciousness [None]
  - Skin discolouration [None]
  - Dyspnoea [None]
  - Respiratory arrest [None]
  - Malaise [None]
  - Cardiac arrest [None]
  - Feeling hot [None]
  - Dizziness [None]
  - Feeling abnormal [None]
